FAERS Safety Report 5036214-X (Version None)
Quarter: 2006Q2

REPORT INFORMATION
  Report Type: 
  Country: None (occurrence: None)
  Receive Date: 20060601
  Receipt Date: 20060203
  Transmission Date: 20061013
  Serious: No
  Sender: FDA-Public Use
  Company Number: US200512002559

PATIENT
  Age: 31 Year
  Sex: Female

DRUGS (2)
  1. CYMBALTA [Suspect]
     Indication: DEPRESSION
     Dosage: 60 MG, DAILY (1/D)
     Dates: start: 20051021, end: 20051123
  2. DECONGESTANT [Concomitant]

REACTIONS (2)
  - BLOOD PRESSURE INCREASED [None]
  - EYE PAIN [None]
